FAERS Safety Report 9121940 (Version 2)
Quarter: 2013Q1

REPORT INFORMATION
  Report Type: Spontaneous
  Country: MX (occurrence: MX)
  Receive Date: 20130227
  Receipt Date: 20130304
  Transmission Date: 20140127
  Serious: Yes (Hospitalization)
  Sender: FDA-Public Use
  Company Number: MX-PFIZER INC-2013069375

PATIENT
  Age: 53 Year
  Sex: Female
  Weight: 65 kg

DRUGS (6)
  1. VFEND [Suspect]
     Indication: BRONCHOPULMONARY ASPERGILLOSIS ALLERGIC
     Dosage: 200 MG, 2X/DAY
     Route: 048
     Dates: start: 20100302
  2. VFEND [Suspect]
     Indication: BRONCHIECTASIS
     Dosage: UNK
     Dates: start: 201211
  3. VFEND [Suspect]
     Indication: BRONCHOPULMONARY ASPERGILLOSIS ALLERGIC
     Dosage: 200 MG, 2X/DAY
     Route: 042
     Dates: start: 201211, end: 201211
  4. VFEND [Suspect]
     Indication: BRONCHIECTASIS
  5. SYMBICORT [Concomitant]
     Indication: BRONCHOSPASM
     Dosage: 2 DF, 2X/DAY
     Dates: start: 200610
  6. SYMBICORT [Concomitant]
     Indication: INFLAMMATION

REACTIONS (2)
  - Drug dose omission [Unknown]
  - Respiratory failure [Recovered/Resolved]
